FAERS Safety Report 5163608-4 (Version None)
Quarter: 2006Q4

REPORT INFORMATION
  Report Type: 
  Country: None (occurrence: None)
  Receive Date: 20061204
  Receipt Date: 20061122
  Transmission Date: 20070319
  Serious: Yes (Life-Threatening, Hospitalization)
  Sender: FDA-Public Use
  Company Number: IT-JNJFOC-20061105712

PATIENT
  Age: 66 Year
  Sex: Male

DRUGS (2)
  1. REOPRO [Suspect]
     Indication: ACUTE MYOCARDIAL INFARCTION
     Route: 042
  2. HEPARIN [Concomitant]

REACTIONS (2)
  - PULMONARY ALVEOLAR HAEMORRHAGE [None]
  - RESPIRATORY FAILURE [None]
